FAERS Safety Report 12217967 (Version 2)
Quarter: 2016Q2

REPORT INFORMATION
  Report Type: Report from Study
  Country: US (occurrence: US)
  Receive Date: 20160329
  Receipt Date: 20160502
  Transmission Date: 20160815
  Serious: Yes (Other)
  Sender: FDA-Public Use
  Company Number: US-ACTELION-A-NJ2016-133373

PATIENT
  Age: 58 Year
  Sex: Female

DRUGS (2)
  1. REVATIO [Concomitant]
     Active Substance: SILDENAFIL CITRATE
  2. MACITENTAN [Suspect]
     Active Substance: MACITENTAN
     Indication: PULMONARY HYPERTENSION
     Dosage: 10 MG, QD
     Route: 048
     Dates: start: 20151209

REACTIONS (9)
  - Chills [Unknown]
  - Vomiting [Unknown]
  - Pain [Unknown]
  - Diarrhoea [Unknown]
  - Arthropathy [Unknown]
  - Seizure [Unknown]
  - Muscle tightness [Unknown]
  - Fibromyalgia [Unknown]
  - Fall [Unknown]
